FAERS Safety Report 15792220 (Version 2)
Quarter: 2019Q2

REPORT INFORMATION
  Report Type: Spontaneous
  Country: US (occurrence: US)
  Receive Date: 20190107
  Receipt Date: 20190408
  Transmission Date: 20190711
  Serious: No
  Sender: FDA-Public Use
  Company Number: US-AUROBINDO-AUR-APU-2018-058004

PATIENT

DRUGS (1)
  1. RITONAVIR 100 MG TABLETS USP [Suspect]
     Active Substance: RITONAVIR
     Indication: PRODUCT USED FOR UNKNOWN INDICATION
     Dosage: UNK
     Route: 065
     Dates: start: 20181120

REACTIONS (2)
  - Product solubility abnormal [Recovered/Resolved]
  - Product residue present [Recovered/Resolved]

NARRATIVE: CASE EVENT DATE: 20181126
